FAERS Safety Report 11900561 (Version 1)
Quarter: 2016Q1

REPORT INFORMATION
  Report Type: Report from Study
  Country: US (occurrence: US)
  Receive Date: 20160108
  Receipt Date: 20160108
  Transmission Date: 20160526
  Serious: No
  Sender: FDA-Public Use
  Company Number: US-ABBVIE-15P-163-1430812-00

PATIENT
  Age: 61 Year
  Sex: Female

DRUGS (1)
  1. VIEKIRA PAK [Suspect]
     Active Substance: DASABUVIR\OMBITASVIR\PARITAPREVIR\RITONAVIR
     Indication: HEPATITIS C
     Dosage: 2 OMBITASVIR/PARITAPREVIR/RITONAVIR 12.5/75/50MG QAM + 1 DASABUVIR 250MG BID(AM/PM) W/MEAL
     Route: 048

REACTIONS (2)
  - Muscle spasms [Unknown]
  - Pain in extremity [Unknown]
